FAERS Safety Report 6717608-0 (Version None)
Quarter: 2010Q2

REPORT INFORMATION
  Report Type: 
  Country: None (occurrence: None)
  Receive Date: 20100510
  Receipt Date: 20100507
  Transmission Date: 20101027
  Serious: Yes (Death, Hospitalization)
  Sender: FDA-Public Use
  Company Number: FR-JNJFOC-20100200262

PATIENT
  Age: 78 Year
  Sex: Male

DRUGS (6)
  1. TAVANIC [Suspect]
     Indication: PROSTATITIS
     Route: 048
     Dates: start: 20100110, end: 20100113
  2. MEMANTINE HCL [Concomitant]
     Route: 065
  3. ARICEPT [Concomitant]
     Route: 065
  4. CASODEX [Concomitant]
     Route: 065
  5. AUGMENTIN '125' [Concomitant]
     Route: 048
  6. AMOXICILLIN AND CLAVULANATE POTASSIUM [Concomitant]
     Route: 065

REACTIONS (5)
  - COMA [None]
  - DISTURBANCE IN ATTENTION [None]
  - LUNG DISORDER [None]
  - MYOCLONUS [None]
  - PYREXIA [None]
